FAERS Safety Report 16681552 (Version 1)
Quarter: 2019Q3

REPORT INFORMATION
  Report Type: Spontaneous
  Country: HR (occurrence: HR)
  Receive Date: 20190808
  Receipt Date: 20190808
  Transmission Date: 20191004
  Serious: Yes (Other)
  Sender: FDA-Public Use
  Company Number: HR-BAYER-2019-145901

PATIENT
  Age: 14 Year
  Sex: Female
  Weight: 60 kg

DRUGS (3)
  1. LEKADOL [Suspect]
     Active Substance: ACETAMINOPHEN
     Dosage: 3000 MG, UNK
     Route: 048
  2. NORMABEL [Suspect]
     Active Substance: DIAZEPAM
     Dosage: 30 MG, UNK
     Route: 048
  3. CLARITINE 10 MG [Suspect]
     Active Substance: LORATADINE
     Dosage: 200 MG, UNK
     Route: 048

REACTIONS (3)
  - Suicide attempt [Unknown]
  - Intentional overdose [Unknown]
  - Somnolence [Unknown]

NARRATIVE: CASE EVENT DATE: 20190515
